FAERS Safety Report 7514151-6 (Version None)
Quarter: 2011Q2

REPORT INFORMATION
  Report Type: 
  Country: None (occurrence: None)
  Receive Date: 20110531
  Receipt Date: 20110524
  Transmission Date: 20111010
  Serious: Yes (Other)
  Sender: FDA-Public Use
  Company Number: JP-B.I. PHARMACEUTICALS,INC./RIDGEFIELD-2011-BP-12781NB

PATIENT
  Age: 82 Year
  Sex: Female

DRUGS (2)
  1. PRADAXA [Suspect]
     Dosage: 220 MG
     Route: 048
     Dates: start: 20110329, end: 20110425
  2. LUPRAC [Suspect]
     Route: 065

REACTIONS (4)
  - HYPERTENSION [None]
  - CARDIAC FAILURE CONGESTIVE [None]
  - SPUTUM DISCOLOURED [None]
  - PULMONARY OEDEMA [None]
